FAERS Safety Report 16372313 (Version 1)
Quarter: 2019Q2

REPORT INFORMATION
  Report Type: Spontaneous
  Country: US (occurrence: US)
  Receive Date: 20190530
  Receipt Date: 20190530
  Transmission Date: 20190711
  Serious: No
  Sender: FDA-Public Use
  Company Number: US-PERRIGO-18US012398

PATIENT
  Age: 57 Year
  Sex: Female
  Weight: 80.73 kg

DRUGS (5)
  1. DEXILANT [Concomitant]
     Active Substance: DEXLANSOPRAZOLE
     Indication: DYSPEPSIA
     Dosage: 60 MG
     Route: 065
  2. TRIAMCINOLONE ACETONIDE. [Suspect]
     Active Substance: TRIAMCINOLONE ACETONIDE
     Indication: PRURITUS
     Dosage: 1 APPLICATION, PRN
     Route: 061
     Dates: start: 201809, end: 20181030
  3. SARNA                              /01326901/ [Concomitant]
     Indication: PRURITUS
     Dosage: UNK
     Route: 061
     Dates: start: 201807
  4. HYDROXYZINE [Concomitant]
     Active Substance: HYDROXYZINE HYDROCHLORIDE
     Indication: PRURITUS
     Dosage: UNK
     Route: 065
  5. TRIAMCINOLONE ACETONIDE. [Suspect]
     Active Substance: TRIAMCINOLONE ACETONIDE
     Dosage: 1 APPLICATION, PRN
     Route: 061
     Dates: start: 20181031

REACTIONS (1)
  - Drug ineffective [Recovered/Resolved]

NARRATIVE: CASE EVENT DATE: 201809
